FAERS Safety Report 7060616-3 (Version None)
Quarter: 2010Q4

REPORT INFORMATION
  Report Type: 
  Country: None (occurrence: None)
  Receive Date: 20101025
  Receipt Date: 20101013
  Transmission Date: 20110411
  Serious: Yes (Hospitalization, Other)
  Sender: FDA-Public Use
  Company Number: US-ELI_LILLY_AND_COMPANY-US201002003360

PATIENT
  Sex: Male
  Weight: 117.91 kg

DRUGS (10)
  1. BYETTA [Suspect]
     Dosage: UNK, UNK
     Dates: start: 20070101, end: 20081001
  2. LASIX [Concomitant]
     Dosage: 40 MG, AS NEEDED
  3. LASIX [Concomitant]
     Dates: start: 20090401
  4. K-DUR [Concomitant]
     Dosage: UNK, AS NEEDED
  5. LISINOPRIL [Concomitant]
     Dosage: 10 MG, DAILY (1/D)
     Route: 048
  6. LISINOPRIL [Concomitant]
     Dosage: 20 MG, DAILY (1/D)
     Dates: start: 20080222
  7. NORVASC [Concomitant]
     Dosage: 10 MG, DAILY (1/D)
  8. DIOVAN HCT [Concomitant]
     Dosage: UNK, UNKNOWN
  9. METFORMIN [Concomitant]
     Dosage: 1000 MG, 3/D
  10. TERAZOZIN [Concomitant]
     Dosage: UNK, UNKNOWN
     Dates: start: 20090401

REACTIONS (3)
  - HYPERTENSION [None]
  - RENAL FAILURE ACUTE [None]
  - RENAL FAILURE CHRONIC [None]
